FAERS Safety Report 7784396-9 (Version None)
Quarter: 2011Q3

REPORT INFORMATION
  Report Type: 
  Country: None (occurrence: None)
  Receive Date: 20110928
  Receipt Date: 20110927
  Transmission Date: 20111222
  Serious: Yes (Death)
  Sender: FDA-Public Use
  Company Number: PHHY2008NL37315

PATIENT
  Sex: Male

DRUGS (6)
  1. SANDOSTATIN LAR [Suspect]
     Indication: CARCINOID TUMOUR
     Dosage: 30 MG, EVERY 3 WEEKS
     Route: 030
     Dates: start: 20051010
  2. PANCREATIN TRIPLE STRENGTH CAP [Concomitant]
     Dosage: 150 MG, UNK
  3. SANDOSTATIN LAR [Suspect]
     Dosage: 30 MG, EVERY 3 WEEKS
     Route: 030
     Dates: start: 20071115
  4. SANDOSTATIN LAR [Suspect]
     Dosage: 20 MG, EVERY 3 WEEKS
     Route: 030
     Dates: start: 20070924
  5. PANTOPRAZOLE [Concomitant]
     Dosage: 40 MG, UNK
  6. SANDOSTATIN LAR [Suspect]
     Dosage: 30 MG,  EVERY 3 WEEKS
     Route: 030
     Dates: start: 20080804

REACTIONS (2)
  - NEOPLASM MALIGNANT [None]
  - LIVER FUNCTION TEST ABNORMAL [None]
